FAERS Safety Report 5917609-6 (Version None)
Quarter: 2008Q4

REPORT INFORMATION
  Report Type: 
  Country: None (occurrence: None)
  Receive Date: 20081014
  Receipt Date: 20081008
  Transmission Date: 20090506
  Serious: Yes (Disabling)
  Sender: FDA-Public Use
  Company Number: US-MERCK-0805USA00680

PATIENT
  Age: 72 Year
  Sex: Female

DRUGS (5)
  1. FOSAMAX [Suspect]
     Indication: OSTEOPOROSIS
     Route: 048
     Dates: start: 19980811, end: 20000101
  2. FOSAMAX [Suspect]
     Route: 048
     Dates: start: 20000101
  3. FOSAMAX [Suspect]
     Indication: OSTEOPENIA
     Route: 048
     Dates: start: 19980811, end: 20000101
  4. FOSAMAX [Suspect]
     Route: 048
     Dates: start: 20000101
  5. RANITIDINE [Concomitant]
     Indication: GASTROOESOPHAGEAL REFLUX DISEASE
     Route: 065

REACTIONS (23)
  - ADVERSE DRUG REACTION [None]
  - BONE FRAGMENTATION [None]
  - DENTAL CARIES [None]
  - GASTROOESOPHAGEAL REFLUX DISEASE [None]
  - GINGIVAL BLEEDING [None]
  - HERPES ZOSTER [None]
  - HYPERTENSION [None]
  - IMPAIRED HEALING [None]
  - JAW DISORDER [None]
  - MOUTH ULCERATION [None]
  - ORAL FUNGAL INFECTION [None]
  - ORAL INFECTION [None]
  - ORAL TORUS [None]
  - OSTEONECROSIS [None]
  - OSTEOPENIA [None]
  - PHARYNGITIS [None]
  - RADICULOPATHY [None]
  - RESORPTION BONE INCREASED [None]
  - SENSITIVITY OF TEETH [None]
  - TOOTH ABSCESS [None]
  - TOOTH DEPOSIT [None]
  - TOOTH FRACTURE [None]
  - TOOTH LOSS [None]
